FAERS Safety Report 16154423 (Version 2)
Quarter: 2019Q2

REPORT INFORMATION
  Report Type: Report from Study
  Country: US (occurrence: US)
  Receive Date: 20190403
  Receipt Date: 20190412
  Transmission Date: 20190711
  Serious: Yes (Hospitalization)
  Sender: FDA-Public Use
  Company Number: US-PFIZER INC-2019134498

PATIENT
  Age: 67 Year
  Sex: Male
  Weight: 44 kg

DRUGS (4)
  1. AMLODIPINE [Concomitant]
     Active Substance: AMLODIPINE BESYLATE
     Dosage: 10 MG, DAILY
     Route: 048
  2. AXITINIB [Suspect]
     Active Substance: AXITINIB
     Indication: OROPHARYNGEAL SQUAMOUS CELL CARCINOMA
     Dosage: 10 MG, 2X/DAY (Q12HRS)
     Route: 048
     Dates: start: 20180927
  3. OXANDROLONE. [Concomitant]
     Active Substance: OXANDROLONE
     Dosage: 2.5 MG, DAILY
     Route: 048
  4. LEVOTHYROXINE. [Concomitant]
     Active Substance: LEVOTHYROXINE
     Dosage: 75 UG, DAILY

REACTIONS (1)
  - Septic shock [Unknown]

NARRATIVE: CASE EVENT DATE: 20190322
